FAERS Safety Report 19049656 (Version 3)
Quarter: 2022Q1

REPORT INFORMATION
  Report Type: Spontaneous
  Country: US (occurrence: US)
  Receive Date: 20210323
  Receipt Date: 20220303
  Transmission Date: 20220423
  Serious: No
  Sender: FDA-Public Use
  Company Number: US-BIOGEN-2021BI00993127

PATIENT
  Age: 52 Year
  Sex: Female

DRUGS (1)
  1. SPINRAZA [Suspect]
     Active Substance: NUSINERSEN
     Indication: Spinal muscular atrophy
     Route: 065
     Dates: start: 201908

REACTIONS (5)
  - Procedural pain [Recovered/Resolved]
  - Hormone level abnormal [Not Recovered/Not Resolved]
  - Polycystic ovaries [Not Recovered/Not Resolved]
  - Sciatica [Not Recovered/Not Resolved]
  - Scoliosis [Unknown]

NARRATIVE: CASE EVENT DATE: 20210317
